FAERS Safety Report 20204471 (Version 2)
Quarter: 2022Q1

REPORT INFORMATION
  Report Type: Spontaneous
  Country: US (occurrence: US)
  Receive Date: 20211220
  Receipt Date: 20220118
  Transmission Date: 20220423
  Serious: No
  Sender: FDA-Public Use
  Company Number: US-CELGENE-USA-20211203171

PATIENT
  Sex: Female
  Weight: 70.824 kg

DRUGS (12)
  1. POMALYST [Suspect]
     Active Substance: POMALIDOMIDE
     Indication: Plasma cell myeloma
     Dosage: 4 MILLIGRAM
     Route: 048
     Dates: start: 202004
  2. POMALYST [Suspect]
     Active Substance: POMALIDOMIDE
     Dosage: 2 MILLIGRAM
     Route: 048
     Dates: start: 202009
  3. BUTRANS [Concomitant]
     Active Substance: BUPRENORPHINE
     Indication: Product used for unknown indication
     Dosage: 10 MCG/HR PATCH
     Route: 065
  4. BUTRANS [Concomitant]
     Active Substance: BUPRENORPHINE
     Dosage: 10 MCG/HR PATCH
     Route: 065
  5. CHOLESTYRAMINE [Concomitant]
     Active Substance: CHOLESTYRAMINE
     Indication: Product used for unknown indication
     Route: 065
  6. TUMS [Concomitant]
     Active Substance: CALCIUM CARBONATE
     Indication: Product used for unknown indication
     Route: 065
  7. GAS-X [Concomitant]
     Active Substance: DIMETHICONE
     Indication: Product used for unknown indication
     Route: 065
  8. CLEAR EYES COMPLETE [Concomitant]
     Active Substance: HYPROMELLOSE 2906 (4000 MPA.S)\NAPHAZOLINE HYDROCHLORIDE\POLYSORBATE 80\ZINC SULFATE HEPTAHYDRATE
     Indication: Product used for unknown indication
     Route: 065
  9. PHENERGAN [Concomitant]
     Active Substance: PROMETHAZINE HYDROCHLORIDE
     Indication: Product used for unknown indication
     Route: 065
  10. CHLORDIAZEPOXIDE [Concomitant]
     Active Substance: CHLORDIAZEPOXIDE
     Indication: Product used for unknown indication
     Route: 065
  11. DULCOLAX NOS [Concomitant]
     Active Substance: BISACODYL OR DOCUSATE SODIUM
     Indication: Product used for unknown indication
     Route: 065
  12. MIRALAX [Concomitant]
     Active Substance: POLYETHYLENE GLYCOL 3350
     Indication: Product used for unknown indication
     Dosage: 17G/DOSE POWDER
     Route: 065

REACTIONS (5)
  - Alopecia [Unknown]
  - Skin discolouration [Unknown]
  - Constipation [Not Recovered/Not Resolved]
  - Nausea [Not Recovered/Not Resolved]
  - Sinusitis [Not Recovered/Not Resolved]
